FAERS Safety Report 5268574-9 (Version None)
Quarter: 2007Q1

REPORT INFORMATION
  Report Type: 
  Country: None (occurrence: None)
  Receive Date: 20070315
  Receipt Date: 20070315
  Transmission Date: 20070707
  Serious: Yes (Other)
  Sender: FDA-Public Use
  Company Number: None

PATIENT
  Age: 57 Year
  Sex: Female
  Weight: 173.2741 kg

DRUGS (1)
  1. LYRICA [Suspect]
     Indication: DIABETIC NEUROPATHY
     Dosage: 50MG  TID  PO
     Route: 048
     Dates: start: 20061101, end: 20070228

REACTIONS (2)
  - BLOOD CREATININE INCREASED [None]
  - WEIGHT INCREASED [None]
